FAERS Safety Report 7313749-8 (Version None)
Quarter: 2011Q1

REPORT INFORMATION
  Report Type: 
  Country: None (occurrence: None)
  Receive Date: 20110225
  Receipt Date: 20110214
  Transmission Date: 20110831
  Serious: Yes (Death, Hospitalization, Disabling, Other)
  Sender: FDA-Public Use
  Company Number: IT-CELGENEUS-083-21880-11021802

PATIENT
  Sex: Male
  Weight: 76 kg

DRUGS (8)
  1. REVLIMID [Suspect]
     Route: 048
     Dates: start: 20101013, end: 20101102
  2. CAMPATH [Suspect]
     Route: 058
     Dates: start: 20101013, end: 20101027
  3. ACICLOVIR [Concomitant]
     Indication: PROPHYLAXIS
     Route: 048
     Dates: start: 20101110
  4. FOLIC ACID [Concomitant]
     Indication: SUPPORTIVE CARE
     Route: 048
     Dates: start: 20100922
  5. VALGANCICLOVIR [Concomitant]
     Route: 048
     Dates: start: 20101103
  6. FILGRASTIM [Concomitant]
     Indication: NEUTROPENIA
     Route: 058
     Dates: start: 20101108
  7. VIT B12 [Concomitant]
     Indication: SUPPORTIVE CARE
     Route: 048
     Dates: start: 20100922
  8. COTRIM [Concomitant]
     Indication: PROPHYLAXIS
     Route: 048
     Dates: start: 20101011, end: 20101110

REACTIONS (3)
  - NEUROPATHY PERIPHERAL [None]
  - ENCEPHALOPATHY [None]
  - PNEUMONIA [None]
